FAERS Safety Report 19709151 (Version 1)
Quarter: 2021Q3

REPORT INFORMATION
  Report Type: Spontaneous
  Country: CN (occurrence: CN)
  Receive Date: 20210817
  Receipt Date: 20210817
  Transmission Date: 20211014
  Serious: Yes (Hospitalization)
  Sender: FDA-Public Use
  Company Number: CN-PFIZER INC-202101007904

PATIENT
  Age: 59 Year
  Sex: Female
  Weight: 60 kg

DRUGS (2)
  1. MEDROL [Suspect]
     Active Substance: METHYLPREDNISOLONE
     Indication: ENCEPHALITIS BRAIN STEM
     Dosage: 44 MG, 1X/DAY
     Route: 048
     Dates: start: 20210425, end: 20210508
  2. MEDROL [Suspect]
     Active Substance: METHYLPREDNISOLONE
     Dosage: 28 MG, 1X/DAY
     Route: 048
     Dates: start: 20210606, end: 20210619

REACTIONS (1)
  - Myopathy [Not Recovered/Not Resolved]

NARRATIVE: CASE EVENT DATE: 20210501
